FAERS Safety Report 9679127 (Version 6)
Quarter: 2015Q4

REPORT INFORMATION
  Report Type: Spontaneous
  Country: BR (occurrence: BR)
  Receive Date: 20131108
  Receipt Date: 20151109
  Transmission Date: 20160305
  Serious: Yes (Other)
  Sender: FDA-Public Use
  Company Number: CHPA2013BR015369

PATIENT
  Age: 60 Year
  Sex: Female
  Weight: 50 kg

DRUGS (11)
  1. HYDROCHLOROTHIAZIDE. [Concomitant]
     Active Substance: HYDROCHLOROTHIAZIDE
     Indication: DIURETIC THERAPY
     Dosage: 1 DF, QD
     Route: 048
  2. APRESOLINE HYDROCHLORIDE [Concomitant]
     Active Substance: HYDRALAZINE HYDROCHLORIDE
     Indication: HYPERTENSION
     Dosage: 1 DF, QD
     Route: 048
     Dates: start: 20131018
  3. PRIVINA [Suspect]
     Active Substance: NAPHAZOLINE NITRATE
     Indication: OFF LABEL USE
  4. AGASTEN [Suspect]
     Active Substance: CLEMASTINE FUMARATE
     Dosage: 1 DF, QD AT NIGHT
     Route: 048
     Dates: start: 201504
  5. PRIVINA [Suspect]
     Active Substance: NAPHAZOLINE NITRATE
     Indication: DYSPNOEA
     Dosage: UNK DRP, QD
     Route: 045
  6. PRIVINA [Suspect]
     Active Substance: NAPHAZOLINE NITRATE
     Indication: NASAL DRYNESS
  7. AGASTEN [Suspect]
     Active Substance: CLEMASTINE FUMARATE
     Indication: RHINITIS ALLERGIC
     Dosage: 1 DF, BID
     Route: 048
     Dates: start: 2007
  8. NEOSORO [Concomitant]
     Indication: PRODUCT USED FOR UNKNOWN INDICATION
     Dosage: UNK
     Route: 065
  9. PRIVINA [Suspect]
     Active Substance: NAPHAZOLINE NITRATE
     Indication: NASAL CONGESTION
     Dosage: 2 GTT, TID AT NIGHT
     Route: 045
  10. LOSARTAN. [Concomitant]
     Active Substance: LOSARTAN
     Indication: HYPERTENSION
     Dosage: 2 DF, QD
     Route: 048
  11. SORINE [Concomitant]
     Active Substance: SOTALOL HYDROCHLORIDE
     Indication: PRODUCT USED FOR UNKNOWN INDICATION
     Dosage: UNK
     Route: 065

REACTIONS (16)
  - Multiple allergies [Recovering/Resolving]
  - Genital tract inflammation [Unknown]
  - Diabetes mellitus [Recovering/Resolving]
  - Drug dependence [Unknown]
  - Cholelithiasis [Recovered/Resolved]
  - Urinary tract infection [Unknown]
  - Chest pain [Unknown]
  - Rib fracture [Recovering/Resolving]
  - Erythema [Recovered/Resolved]
  - Hypertension [Recovering/Resolving]
  - Gait disturbance [Recovering/Resolving]
  - Respiratory distress [Recovering/Resolving]
  - Influenza [Not Recovered/Not Resolved]
  - Disease recurrence [Recovered/Resolved]
  - Fall [Recovering/Resolving]
  - Dyspnoea [Recovering/Resolving]

NARRATIVE: CASE EVENT DATE: 2013
